FAERS Safety Report 5515619-4 (Version None)
Quarter: 2007Q4

REPORT INFORMATION
  Report Type: 
  Country: None (occurrence: None)
  Receive Date: 20071113
  Receipt Date: 20070709
  Transmission Date: 20080405
  Serious: Yes (Hospitalization)
  Sender: FDA-Public Use
  Company Number: A0662515A

PATIENT
  Age: 87 Year
  Sex: Male

DRUGS (3)
  1. COREG [Suspect]
     Dosage: 6.25MG TWICE PER DAY
     Route: 048
  2. POTASSIUM CHLORIDE [Concomitant]
  3. LASIX [Concomitant]

REACTIONS (2)
  - DIARRHOEA [None]
  - OEDEMA [None]
